FAERS Safety Report 9217274 (Version 1)
Quarter: 2013Q2

REPORT INFORMATION
  Report Type: Spontaneous
  Country: US (occurrence: None)
  Receive Date: 20130404
  Receipt Date: 20130404
  Transmission Date: 20140414
  Serious: Yes (Life-Threatening)
  Sender: FDA-Public Use
  Company Number: 001502049A

PATIENT
  Age: 24 Year
  Sex: Female

DRUGS (5)
  1. PROACTIV SOLUTION RENEWING CLEANSER [Suspect]
     Indication: ACNE
     Dosage: DERMAL TWICE DAILY?
     Dates: start: 20130311, end: 20130312
  2. PROACTIV SOLUTION REPAIRING TREATMENT [Suspect]
     Indication: ACNE
     Dosage: DERMAL TWICE DAILY?
     Dates: start: 20130311, end: 20130312
  3. PROACTIV SOLUTION OIL FREE MOISTURE SPF 15 [Suspect]
     Indication: ACNE
     Dosage: DERMAL TWICE DAILY?
     Dates: start: 20130311, end: 20130312
  4. PROACTIV DARK SPOT CORRECTOR [Suspect]
     Indication: ACNE
     Dates: start: 20130311, end: 20130312
  5. VITAMINS [Concomitant]

REACTIONS (6)
  - Burning sensation [None]
  - Pruritus [None]
  - Urticaria [None]
  - Swelling face [None]
  - Eye swelling [None]
  - Lip swelling [None]
